FAERS Safety Report 13242858 (Version 7)
Quarter: 2019Q4

REPORT INFORMATION
  Report Type: Spontaneous
  Country: US (occurrence: US)
  Receive Date: 20170216
  Receipt Date: 20191223
  Transmission Date: 20200122
  Serious: Yes (Death, Hospitalization)
  Sender: FDA-Public Use
  Company Number: US-VIFOR (INTERNATIONAL) INC.-VIT-2017-01524

PATIENT
  Age: 66 Year
  Sex: Male
  Weight: 99.88 kg

DRUGS (13)
  1. VELTASSA [Suspect]
     Active Substance: PATIROMER
     Route: 048
     Dates: start: 20160817
  2. PANTOPRAZOLE SODIUM. [Concomitant]
     Active Substance: PANTOPRAZOLE SODIUM
  3. COLCHICINE. [Concomitant]
     Active Substance: COLCHICINE
  4. IRON [Concomitant]
     Active Substance: IRON
  5. WARFARIN SODIUM. [Concomitant]
     Active Substance: WARFARIN SODIUM
  6. FUROSEMIDE. [Concomitant]
     Active Substance: FUROSEMIDE
  7. DULOXETINE HYDROCHLORIDE. [Concomitant]
     Active Substance: DULOXETINE HYDROCHLORIDE
  8. ALLOPURINOL. [Concomitant]
     Active Substance: ALLOPURINOL
  9. SPIRONOLACTONE. [Concomitant]
     Active Substance: SPIRONOLACTONE
  10. VELTASSA [Suspect]
     Active Substance: PATIROMER
     Indication: HYPERKALAEMIA
     Route: 048
     Dates: start: 20160514
  11. XIFAXAN [Concomitant]
     Active Substance: RIFAXIMIN
  12. ABSORICA [Concomitant]
     Active Substance: ISOTRETINOIN
  13. NADOLOL. [Concomitant]
     Active Substance: NADOLOL

REACTIONS (6)
  - Diarrhoea [Unknown]
  - Urinary tract infection [Recovered/Resolved]
  - Inappropriate schedule of product administration [Unknown]
  - Death [Fatal]
  - Clostridium difficile colitis [Unknown]
  - Dehydration [Unknown]

NARRATIVE: CASE EVENT DATE: 20160514
